FAERS Safety Report 15021371 (Version 1)
Quarter: 2018Q2

REPORT INFORMATION
  Report Type: Spontaneous
  Country: FR (occurrence: FR)
  Receive Date: 20180618
  Receipt Date: 20180618
  Transmission Date: 20180711
  Serious: Yes (Hospitalization)
  Sender: FDA-Public Use
  Company Number: FR-AUROBINDO-AUR-APL-2018-031259

PATIENT
  Age: 83 Year
  Sex: Female

DRUGS (10)
  1. LEXOMIL [Concomitant]
     Active Substance: BROMAZEPAM
     Indication: PRODUCT USED FOR UNKNOWN INDICATION
     Dosage: UNK
     Route: 065
  2. SOTALEX [Concomitant]
     Active Substance: SOTALOL
     Indication: PRODUCT USED FOR UNKNOWN INDICATION
     Dosage: UNK
     Route: 065
  3. LEVOTHYROX [Concomitant]
     Active Substance: LEVOTHYROXINE
     Indication: PRODUCT USED FOR UNKNOWN INDICATION
     Dosage: UNK
     Route: 065
  4. MYCOSTATINE [Concomitant]
     Active Substance: NYSTATIN
     Indication: PRODUCT USED FOR UNKNOWN INDICATION
     Dosage: UNK
     Route: 065
  5. VANCOMYCINE MYLAN                  /00314401/ [Suspect]
     Active Substance: VANCOMYCIN
     Indication: PSEUDOMEMBRANOUS COLITIS
     Dosage: 500 MILLIGRAM, ONCE A DAY
     Route: 048
     Dates: start: 20180515, end: 20180522
  6. OMEPRAZOLE. [Concomitant]
     Active Substance: OMEPRAZOLE
     Indication: PRODUCT USED FOR UNKNOWN INDICATION
     Dosage: UNK
     Route: 065
  7. CEFTRIAXONE. [Suspect]
     Active Substance: CEFTRIAXONE
     Indication: PYELONEPHRITIS
     Dosage: UNK
     Route: 042
     Dates: start: 20180510, end: 20180512
  8. ATARAX [Concomitant]
     Active Substance: HYDROXYZINE HYDROCHLORIDE
     Indication: PRODUCT USED FOR UNKNOWN INDICATION
     Dosage: UNK
     Route: 065
  9. GENTAMICINE PANPHARMA [Suspect]
     Active Substance: GENTAMICIN
     Indication: PYELONEPHRITIS
     Dosage: UNK
     Route: 042
     Dates: start: 20180510, end: 20180512
  10. CEFIXIME ARROW [Suspect]
     Active Substance: CEFIXIME
     Indication: PYELONEPHRITIS
     Dosage: UNK
     Route: 048
     Dates: start: 20180513, end: 20180515

REACTIONS (2)
  - Condition aggravated [Not Recovered/Not Resolved]
  - Acute kidney injury [Not Recovered/Not Resolved]

NARRATIVE: CASE EVENT DATE: 20180513
